FAERS Safety Report 5300240-3 (Version None)
Quarter: 2007Q2

REPORT INFORMATION
  Report Type: 
  Country: None (occurrence: None)
  Receive Date: 20070418
  Receipt Date: 20070405
  Transmission Date: 20071010
  Serious: Yes (Death, Hospitalization)
  Sender: FDA-Public Use
  Company Number: US-JNJFOC-20060605623

PATIENT
  Sex: Male
  Weight: 76.43 kg

DRUGS (5)
  1. TYLENOL (CAPLET) [Suspect]
  2. TYLENOL (CAPLET) [Suspect]
     Indication: HEADACHE
     Dosage: 1950-2600 PER DAY X 3 WEEKS
  3. HUMALOG [Concomitant]
     Indication: DIABETES MELLITUS INSULIN-DEPENDENT
  4. EFFEXOR XR [Concomitant]
     Indication: DEPRESSION
  5. BACTRIM [Concomitant]
     Indication: FOLLICULITIS

REACTIONS (6)
  - ACUTE HEPATIC FAILURE [None]
  - DRUG TOXICITY [None]
  - HEPATIC ENCEPHALOPATHY [None]
  - INTENTIONAL DRUG MISUSE [None]
  - RENAL FAILURE ACUTE [None]
  - RESPIRATORY FAILURE [None]
